FAERS Safety Report 5217168-X (Version None)
Quarter: 2007Q1

REPORT INFORMATION
  Report Type: 
  Country: None (occurrence: None)
  Receive Date: 20070123
  Receipt Date: 20070123
  Transmission Date: 20070707
  Serious: Yes (Life-Threatening, Hospitalization, Disabling)
  Sender: FDA-Public Use
  Company Number: None

PATIENT
  Age: 38 Year
  Sex: Male
  Weight: 74.8435 kg

DRUGS (1)
  1. NEURONTIN [Suspect]
     Indication: DIABETIC NEUROPATHY
     Dosage: 300 MG ONCE PER DAY PO
     Route: 048
     Dates: start: 20061103, end: 20061105

REACTIONS (10)
  - ANOXIA [None]
  - BRAIN DAMAGE [None]
  - BRAIN OEDEMA [None]
  - CARDIAC ARREST [None]
  - DIPLEGIA [None]
  - DYSPNOEA [None]
  - LEUKOENCEPHALOMYELITIS [None]
  - SPINAL DISORDER [None]
  - SWELLING [None]
  - WRONG DRUG ADMINISTERED [None]
